FAERS Safety Report 5669735-7 (Version None)
Quarter: 2008Q1

REPORT INFORMATION
  Report Type: 
  Country: None (occurrence: None)
  Receive Date: 20080317
  Receipt Date: 20080305
  Transmission Date: 20080703
  Serious: Yes (Other)
  Sender: FDA-Public Use
  Company Number: US-GILEAD-2008-0015618

PATIENT
  Age: 36 Year
  Sex: Female

DRUGS (4)
  1. VIREAD [Suspect]
     Indication: HIV INFECTION
     Route: 048
     Dates: start: 20070605, end: 20070810
  2. VIREAD [Suspect]
     Route: 048
     Dates: start: 20070529, end: 20070530
  3. ENTECAVIR [Suspect]
     Indication: HIV INFECTION
     Route: 048
     Dates: start: 20070529, end: 20070530
  4. ENTECAVIR [Suspect]
     Route: 048
     Dates: start: 20070628, end: 20070810

REACTIONS (1)
  - ABORTION SPONTANEOUS [None]
